FAERS Safety Report 9412356 (Version 1)
Quarter: 2013Q3

REPORT INFORMATION
  Report Type: Spontaneous
  Country: US (occurrence: US)
  Receive Date: 20130722
  Receipt Date: 20130722
  Transmission Date: 20140515
  Serious: Yes (Other)
  Sender: FDA-Public Use
  Company Number: US-PFIZER INC-2013210213

PATIENT
  Age: 63 Year
  Sex: Female
  Weight: 68.03 kg

DRUGS (6)
  1. ESTRING [Suspect]
     Indication: MENOPAUSAL SYMPTOMS
     Dosage: UNK, EVERY 3 MONTHS
     Route: 067
  2. ESTRING [Suspect]
     Indication: VAGINAL INFECTION
  3. PRILOSEC [Concomitant]
     Indication: GASTROOESOPHAGEAL REFLUX DISEASE
     Dosage: 20 MG, 1X/DAY
  4. TOPROL [Concomitant]
     Indication: HYPERTENSION
     Dosage: 20 MG, 2X/DAY
  5. SIMVASTATIN [Concomitant]
     Indication: BLOOD CHOLESTEROL INCREASED
     Dosage: UNK, 1X/DAY
  6. FENOFIBRATE [Concomitant]
     Indication: BLOOD CHOLESTEROL INCREASED
     Dosage: 145 MG, 1X/DAY

REACTIONS (2)
  - Uterine cervical erosion [Unknown]
  - Drug ineffective [Not Recovered/Not Resolved]
